FAERS Safety Report 26211549 (Version 1)
Quarter: 2025Q4

REPORT INFORMATION
  Report Type: Spontaneous
  Country: US (occurrence: US)
  Receive Date: 20251230
  Receipt Date: 20251230
  Transmission Date: 20260117
  Serious: Yes (Hospitalization)
  Sender: ROCHE
  Company Number: US-ROCHE-10000466082

PATIENT
  Sex: Female

DRUGS (1)
  1. HEMLIBRA [Suspect]
     Active Substance: EMICIZUMAB-KXWH
     Indication: Coagulation factor deficiency
     Dosage: SINGLE DOSE VIAL (SDV)?105 MG/.7ML
     Route: 058
     Dates: start: 202510

REACTIONS (1)
  - Dyspnoea [Unknown]
